FAERS Safety Report 17367183 (Version 1)
Quarter: 2020Q1

REPORT INFORMATION
  Report Type: Spontaneous
  Country: US (occurrence: US)
  Receive Date: 20200204
  Receipt Date: 20200204
  Transmission Date: 20200409
  Serious: Yes (Other)
  Sender: FDA-Public Use
  Company Number: US-PFIZER INC-2020045550

PATIENT
  Age: 89 Year
  Sex: Male
  Weight: 77.11 kg

DRUGS (2)
  1. ASPIRIN. [Concomitant]
     Active Substance: ASPIRIN
     Dosage: UNK, 1X/DAY
  2. REVATIO [Suspect]
     Active Substance: SILDENAFIL CITRATE
     Indication: DYSPNOEA
     Dosage: 20 MG, 3X/DAY

REACTIONS (4)
  - Gastrointestinal carcinoma [Unknown]
  - Off label use [Unknown]
  - Renal neoplasm [Unknown]
  - Product use in unapproved indication [Unknown]
